FAERS Safety Report 8085066-2 (Version None)
Quarter: 2012Q1

REPORT INFORMATION
  Report Type: 
  Country: None (occurrence: None)
  Receive Date: 20120128
  Receipt Date: 20110329
  Transmission Date: 20120608
  Serious: No
  Sender: FDA-Public Use
  Company Number: US-ABBOTT-11P-163-0714795-00

PATIENT
  Sex: Male

DRUGS (2)
  1. HUMIRA [Suspect]
     Dates: start: 20110211
  2. HUMIRA [Suspect]
     Indication: PSORIASIS
     Dates: start: 20110211, end: 20110211

REACTIONS (1)
  - FATIGUE [None]
